FAERS Safety Report 8087191-9 (Version None)
Quarter: 2012Q1

REPORT INFORMATION
  Report Type: 
  Country: None (occurrence: None)
  Receive Date: 20120128
  Receipt Date: 20110425
  Transmission Date: 20120608
  Serious: No
  Sender: FDA-Public Use
  Company Number: US-ABBOTT-11P-163-0721999-00

PATIENT
  Sex: Female
  Weight: 62.198 kg

DRUGS (5)
  1. HUMIRA [Suspect]
     Dosage: 2 PENS
     Dates: start: 20110326, end: 20110326
  2. ACETAMINOPHEN [Concomitant]
     Indication: PAIN
  3. HUMIRA [Suspect]
     Dates: start: 20110409
  4. HUMIRA [Suspect]
     Indication: CROHN'S DISEASE
     Dosage: 4 PENS: 1 IN 1 DAYS
     Dates: start: 20110312, end: 20110312
  5. EXCEDRIN [Concomitant]
     Indication: PAIN

REACTIONS (10)
  - MUSCULOSKELETAL PAIN [None]
  - BACK PAIN [None]
  - NECK PAIN [None]
  - INCORRECT DOSE ADMINISTERED [None]
  - BOWEL MOVEMENT IRREGULARITY [None]
  - ABDOMINAL PAIN [None]
  - MEDICATION ERROR [None]
  - ABDOMINAL DISCOMFORT [None]
  - DIARRHOEA [None]
  - CROHN'S DISEASE [None]
